FAERS Safety Report 14943837 (Version 1)
Quarter: 2018Q2

REPORT INFORMATION
  Report Type: Spontaneous
  Country: FR (occurrence: FR)
  Receive Date: 20180528
  Receipt Date: 20180528
  Transmission Date: 20180711
  Serious: Yes (Hospitalization)
  Sender: FDA-Public Use
  Company Number: FR-TEVA-2018-FR-898430

PATIENT
  Age: 62 Year
  Sex: Male
  Weight: 94 kg

DRUGS (6)
  1. LASILIX 40 MG, COMPRIM? S?CABLE [Suspect]
     Active Substance: FUROSEMIDE
     Indication: OEDEMA
     Dosage: 40 MILLIGRAM DAILY;
     Route: 048
     Dates: start: 2014, end: 20180122
  2. KARDEGIC [Concomitant]
     Active Substance: ASPIRIN DL-LYSINE
     Route: 048
     Dates: start: 2015
  3. CARDENSIEL 2,5 MG, COMPRIM? PELLICUL? S?CABLE [Concomitant]
     Dosage: 2.5 MILLIGRAM DAILY;
     Route: 048
     Dates: start: 2013
  4. METFORMINE [Concomitant]
     Active Substance: METFORMIN HYDROCHLORIDE
     Dosage: 3000 MILLIGRAM DAILY;
     Route: 048
     Dates: start: 2013, end: 20180122
  5. XULTOPHY 100/3.6 [Suspect]
     Active Substance: INSULIN DEGLUDEC\LIRAGLUTIDE
     Indication: TYPE 2 DIABETES MELLITUS
     Dosage: 1 DOSAGE FORMS DAILY;
     Route: 058
     Dates: start: 20180102, end: 20180122
  6. RAMIPRIL. [Suspect]
     Active Substance: RAMIPRIL
     Indication: HYPERTENSION
     Dosage: 2.5 MILLIGRAM DAILY;
     Route: 048
     Dates: start: 2014, end: 20180122

REACTIONS (1)
  - Renal tubular necrosis [Recovering/Resolving]

NARRATIVE: CASE EVENT DATE: 20180122
